FAERS Safety Report 16108169 (Version 2)
Quarter: 2019Q4

REPORT INFORMATION
  Report Type: Spontaneous
  Country: JP (occurrence: JP)
  Receive Date: 20190322
  Receipt Date: 20191031
  Transmission Date: 20200122
  Serious: Yes (Other)
  Sender: FDA-Public Use
  Company Number: JP-BRISTOL-MYERS SQUIBB COMPANY-BMS-2019-025276

PATIENT
  Age: 77 Year
  Sex: Male

DRUGS (1)
  1. METGLUCO [Suspect]
     Active Substance: METFORMIN HYDROCHLORIDE
     Indication: TYPE 2 DIABETES MELLITUS
     Route: 048

REACTIONS (5)
  - Pneumococcal infection [Unknown]
  - White blood cell count increased [Unknown]
  - Renal abscess [Unknown]
  - Pyrexia [Unknown]
  - Chills [Unknown]
